FAERS Safety Report 10067533 (Version 2)
Quarter: 2014Q2

REPORT INFORMATION
  Report Type: Spontaneous
  Country: IT (occurrence: IT)
  Receive Date: 20140409
  Receipt Date: 20140512
  Transmission Date: 20141212
  Serious: Yes (Death)
  Sender: FDA-Public Use
  Company Number: IT-TEVA-472422ISR

PATIENT
  Age: 75 Year
  Sex: Male
  Weight: 78 kg

DRUGS (2)
  1. ALIMTA - ELI LILLY NEDERLAND BV [Suspect]
     Indication: LUNG NEOPLASM MALIGNANT
     Dosage: 500 MG/M2 CYCLICAL, CONCENTRATE FOR SOLUTION FOR INFUSION
     Route: 042
     Dates: start: 20140122, end: 20140212
  2. CARBOPLATIN [Suspect]
     Indication: LUNG NEOPLASM MALIGNANT
     Dosage: 320 MG CYCLICAL, CONCENTRATE FOR SOLUTION FOR INFUSION
     Dates: start: 20140212, end: 20140212

REACTIONS (3)
  - Hepatic failure [Fatal]
  - Renal failure [Fatal]
  - Bone marrow toxicity [Fatal]
